FAERS Safety Report 5636309-3 (Version None)
Quarter: 2008Q1

REPORT INFORMATION
  Report Type: 
  Country: None (occurrence: None)
  Receive Date: 20080225
  Receipt Date: 20080225
  Transmission Date: 20080703
  Serious: Yes (Hospitalization, Disabling)
  Sender: FDA-Public Use
  Company Number: None

PATIENT
  Age: 65 Year
  Sex: Male
  Weight: 93 kg

DRUGS (1)
  1. HEPARIN SODIUM [Suspect]
     Indication: THROMBOSIS PROPHYLAXIS
     Dosage: 2,000 UNITS, 1,000 UNITS 1 EACH INTRA-ARTER
     Route: 013
     Dates: start: 20070530, end: 20070530

REACTIONS (1)
  - CEREBROVASCULAR ACCIDENT [None]
